FAERS Safety Report 8525744-1 (Version None)
Quarter: 2012Q3

REPORT INFORMATION
  Report Type: 
  Country: None (occurrence: None)
  Receive Date: 20120720
  Receipt Date: 20120627
  Transmission Date: 20120928
  Serious: Yes (Other)
  Sender: FDA-Public Use
  Company Number: US-MSD-0707USA02693

PATIENT

DRUGS (3)
  1. FOSAMAX PLUS D [Suspect]
     Indication: OSTEOPOROSIS
     Route: 048
     Dates: start: 20060302
  2. FOSAMAX [Suspect]
     Indication: BLOOD CHOLESTEROL INCREASED
     Dosage: 70 MG, QW
     Route: 048
     Dates: start: 20021001, end: 20060501
  3. TRICOR [Concomitant]
     Indication: BLOOD CHOLESTEROL INCREASED
     Dates: start: 19800101

REACTIONS (26)
  - OSTEOMYELITIS [None]
  - GALLBLADDER DISORDER [None]
  - IMPLANT SITE DISCHARGE [None]
  - TOOTH FRACTURE [None]
  - ERYTHEMA [None]
  - CHOLELITHIASIS [None]
  - GRAFT DYSFUNCTION [None]
  - TOOTH DISORDER [None]
  - ADRENAL ADENOMA [None]
  - DIVERTICULUM [None]
  - DYSGEUSIA [None]
  - TOOTH ABSCESS [None]
  - CAROTID ARTERY DISEASE [None]
  - BONE LOSS [None]
  - PAIN IN EXTREMITY [None]
  - ANGIOMYOLIPOMA [None]
  - COLONIC POLYP [None]
  - VULVOVAGINAL DRYNESS [None]
  - ATROPHY [None]
  - MUSCULOSKELETAL PAIN [None]
  - HEPATIC STEATOSIS [None]
  - EAR PAIN [None]
  - EXOSTOSIS [None]
  - BONE DENSITY DECREASED [None]
  - OSTEONECROSIS OF JAW [None]
  - SQUAMOUS CELL CARCINOMA OF SKIN [None]
